FAERS Safety Report 4733824-1 (Version None)
Quarter: 2005Q3

REPORT INFORMATION
  Report Type: 
  Country: None (occurrence: None)
  Receive Date: 20050729
  Receipt Date: 20050727
  Transmission Date: 20060218
  Serious: No
  Sender: FDA-Public Use
  Company Number: FABR-11156

PATIENT
  Age: 56 Year
  Sex: Male
  Weight: 55 kg

DRUGS (12)
  1. FABRAZYME [Suspect]
     Indication: FABRY'S DISEASE
     Dosage: 55 MG Q2WKS; IV
     Route: 042
     Dates: start: 20041105
  2. ACETAMINOPHEN [Concomitant]
  3. HYDROXYZINE PAMOATE [Concomitant]
  4. METHYLPREDNISOLONE SODIUM SUCCINATE [Concomitant]
  5. WARFARIN POTASSIUM [Concomitant]
  6. CALCITRIOL [Concomitant]
  7. ALLOPURINOL [Concomitant]
  8. PRECIPITATED CALCIUM CARBONATE [Concomitant]
  9. SENNOSIDE [Concomitant]
  10. FUROSEMIDE [Concomitant]
  11. MIDODRINE HCL [Concomitant]
  12. TOCOPHEROL CONCENTRATE CAP [Concomitant]

REACTIONS (2)
  - CONDITION AGGRAVATED [None]
  - HYPOTENSION [None]
